FAERS Safety Report 6212277-0 (Version None)
Quarter: 2009Q2

REPORT INFORMATION
  Report Type: 
  Country: None (occurrence: None)
  Receive Date: 20090529
  Receipt Date: 20090520
  Transmission Date: 20091009
  Serious: Yes (Other)
  Sender: FDA-Public Use
  Company Number: US-2008-1137

PATIENT
  Age: 74 Year
  Sex: Female

DRUGS (6)
  1. NAVELBINE [Suspect]
     Indication: BREAST CANCER METASTATIC
     Dates: start: 20060329
  2. NEUPOGEN [Suspect]
     Indication: CHEMOTHERAPY
     Dosage: 300 UG IV
     Route: 042
     Dates: start: 20060330, end: 20060614
  3. NEUPOGEN [Suspect]
     Indication: CHEMOTHERAPY
  4. PACLITAXEL [Suspect]
     Indication: BREAST CANCER METASTATIC
     Dosage: 154 MG IV
     Route: 042
     Dates: start: 20060329
  5. ARANESP [Concomitant]
  6. POTASSIUM CHLORIDE [Concomitant]

REACTIONS (5)
  - ANAEMIA [None]
  - ATELECTASIS [None]
  - PNEUMONIA [None]
  - PNEUMONITIS [None]
  - REFUSAL OF TREATMENT BY PATIENT [None]
